FAERS Safety Report 14048536 (Version 2)
Quarter: 2017Q4

REPORT INFORMATION
  Report Type: Report from Study
  Country: None (occurrence: US)
  Receive Date: 20171005
  Receipt Date: 20171023
  Transmission Date: 20180321
  Serious: Yes (Hospitalization)
  Sender: FDA-Public Use
  Company Number: US-BIOGEN-2017BV000325

PATIENT
  Sex: Male
  Weight: 22.4 kg

DRUGS (6)
  1. RFIXFC [Suspect]
     Active Substance: EFTRENONACOG ALFA
     Indication: FACTOR IX DEFICIENCY
     Route: 042
     Dates: start: 20150716
  2. RFIXFC [Suspect]
     Active Substance: EFTRENONACOG ALFA
     Dosage: ONCE
     Route: 042
     Dates: start: 20170922
  3. RFIXFC [Suspect]
     Active Substance: EFTRENONACOG ALFA
     Dosage: ONCE
     Route: 042
     Dates: start: 20170916
  4. RFIXFC [Suspect]
     Active Substance: EFTRENONACOG ALFA
     Route: 042
     Dates: start: 20170921
  5. ACETAMINOPHEN. [Concomitant]
     Active Substance: ACETAMINOPHEN
     Indication: PYREXIA
     Dosage: AS NEEDED
     Route: 048
     Dates: start: 20161120
  6. LORATADINE. [Concomitant]
     Active Substance: LORATADINE
     Indication: NASAL CONGESTION
     Dosage: AS NEEDED
     Route: 048
     Dates: start: 20161010

REACTIONS (1)
  - Mouth haemorrhage [Recovered/Resolved]

NARRATIVE: CASE EVENT DATE: 20170922
